FAERS Safety Report 9127461 (Version 1)
Quarter: 2013Q1

REPORT INFORMATION
  Report Type: Spontaneous
  Country: US (occurrence: US)
  Receive Date: 20130228
  Receipt Date: 20130228
  Transmission Date: 20140127
  Serious: No
  Sender: FDA-Public Use
  Company Number: US-GLAXOSMITHKLINE-A0978041A

PATIENT
  Age: 26 Year
  Sex: Male

DRUGS (3)
  1. LAMICTAL [Suspect]
     Indication: PRODUCT USED FOR UNKNOWN INDICATION
     Dosage: 200MG SINGLE DOSE
     Route: 048
  2. CONCERTA [Concomitant]
  3. BUSPAR [Concomitant]

REACTIONS (3)
  - Nausea [Recovered/Resolved]
  - Feeling abnormal [Unknown]
  - Accidental overdose [Unknown]
